FAERS Safety Report 25994899 (Version 3)
Quarter: 2025Q4

REPORT INFORMATION
  Report Type: Spontaneous
  Country: US (occurrence: US)
  Receive Date: 20251104
  Receipt Date: 20251230
  Transmission Date: 20260118
  Serious: No
  Sender: MICRO LABS LIMITED
  Company Number: US-MICRO LABS LIMITED-ML2025-05695

PATIENT
  Age: 85 Year
  Sex: Female

DRUGS (1)
  1. DORZOLAMIDE\TIMOLOL [Suspect]
     Active Substance: DORZOLAMIDE\TIMOLOL
     Indication: Glaucoma
     Dosage: DOSE: ONE DROP IN EACH EYE ?STRENGTH: 2%/0.5%
     Route: 047

REACTIONS (5)
  - Foreign body sensation in eyes [Unknown]
  - Product storage error [Unknown]
  - Increased dose administered [Unknown]
  - Product quality issue [Unknown]
  - Product use issue [Unknown]
